FAERS Safety Report 6657008-5 (Version None)
Quarter: 2010Q1

REPORT INFORMATION
  Report Type: 
  Country: None (occurrence: None)
  Receive Date: 20100330
  Receipt Date: 20100318
  Transmission Date: 20100710
  Serious: Yes (Hospitalization)
  Sender: FDA-Public Use
  Company Number: FR-TEVA-228657ISR

PATIENT
  Sex: Female

DRUGS (11)
  1. FLUOROURACIL [Suspect]
     Route: 042
     Dates: start: 20100108
  2. EPIRUBICIN [Suspect]
     Route: 042
     Dates: start: 20100108
  3. CYCLOPHOSPHAMIDE [Suspect]
     Route: 042
     Dates: start: 20100108
  4. VECTIBIC (PANITUMUMAB) [Suspect]
     Indication: BREAST CANCER
     Route: 042
     Dates: start: 20100108
  5. LEVOTHYROXINE SODIUM [Concomitant]
  6. ONDANSETRON HYDROCHLORIDE [Concomitant]
  7. PREDNISOLONE [Concomitant]
  8. DOMPERIDONE [Concomitant]
  9. DOXYCYCLINE [Concomitant]
  10. SODIUM BICARBONATE [Concomitant]
  11. DOCETAXEL [Concomitant]

REACTIONS (1)
  - FEBRILE BONE MARROW APLASIA [None]
